FAERS Safety Report 17548121 (Version 4)
Quarter: 2020Q2

REPORT INFORMATION
  Report Type: Report from Study
  Country: None (occurrence: US)
  Receive Date: 20200317
  Receipt Date: 20200417
  Transmission Date: 20200713
  Serious: Yes (Other)
  Sender: FDA-Public Use
  Company Number: US-ABBVIE-20P-163-3315850-00

PATIENT
  Age: 72 Year
  Sex: Female

DRUGS (3)
  1. IMBRUVICA [Suspect]
     Active Substance: IBRUTINIB
     Indication: CHRONIC LYMPHOCYTIC LEUKAEMIA
     Route: 048
     Dates: start: 20200304
  2. RITUXAN [Suspect]
     Active Substance: RITUXIMAB
     Indication: PRODUCT USED FOR UNKNOWN INDICATION
     Dosage: ONCE A WEEK FOR FOUR WEEKS.
     Route: 065
     Dates: start: 20200304
  3. ALLOPURINOL. [Concomitant]
     Active Substance: ALLOPURINOL
     Indication: PRODUCT USED FOR UNKNOWN INDICATION

REACTIONS (11)
  - White blood cell count increased [Unknown]
  - Mitral valve prolapse [Unknown]
  - Increased tendency to bruise [Recovering/Resolving]
  - Injury [Not Recovered/Not Resolved]
  - Platelet count decreased [Recovering/Resolving]
  - Rash macular [Unknown]
  - Hypertension [Unknown]
  - Ligament sprain [Unknown]
  - Palpitations [Unknown]
  - Immune system disorder [Unknown]
  - Rheumatoid arthritis [Unknown]

NARRATIVE: CASE EVENT DATE: 20200410
